FAERS Safety Report 8237583-X (Version None)
Quarter: 2012Q1

REPORT INFORMATION
  Report Type: 
  Country: None (occurrence: None)
  Receive Date: 20120327
  Receipt Date: 20120322
  Transmission Date: 20120608
  Serious: Yes (Hospitalization, Other)
  Sender: FDA-Public Use
  Company Number: US-PFIZER INC-2012074943

PATIENT
  Age: 23 Year
  Sex: Female

DRUGS (1)
  1. PIPERACILLIN AND TAZOBACTAM [Suspect]
     Indication: LUNG INFECTION PSEUDOMONAL
     Route: 042

REACTIONS (1)
  - HAEMOLYTIC ANAEMIA [None]
